FAERS Safety Report 8487449 (Version 3)
Quarter: 2012Q4

REPORT INFORMATION
  Report Type: 
  Country: BR (occurrence: BR)
  Receive Date: 20120402
  Receipt Date: 20120912
  Transmission Date: 20130627
  Serious: Yes (Hospitalization, Other)
  Sender: FDA-Public Use
  Company Number: BR-BAYER-2012-029089

PATIENT
  Sex: Male

DRUGS (3)
  1. MOXIFLOXACIN HYDROCHLORIDE [Suspect]
     Indication: PNEUMONIA
     Dosage: UNK UNK, QD
     Route: 042
     Dates: start: 20120308, end: 20120309
  2. MOXIFLOXACIN HYDROCHLORIDE [Suspect]
     Indication: PNEUMONIA
     Dosage: 400 mg, QD
     Route: 048
     Dates: start: 20120306, end: 20120307
  3. MOXIFLOXACIN HYDROCHLORIDE [Suspect]
     Indication: PNEUMONIA
     Dosage: 400 mg, QD
     Route: 048
     Dates: start: 20120310, end: 20120311

REACTIONS (8)
  - Anosmia [Recovering/Resolving]
  - Ageusia [Recovering/Resolving]
  - Hyperhidrosis [None]
  - Headache [None]
  - Dizziness [None]
  - Pyrexia [None]
  - Malaise [None]
  - Asthenia [None]
